FAERS Safety Report 6654380-7 (Version None)
Quarter: 2010Q1

REPORT INFORMATION
  Report Type: 
  Country: None (occurrence: None)
  Receive Date: 20100326
  Receipt Date: 20100318
  Transmission Date: 20100710
  Serious: Yes (Other)
  Sender: FDA-Public Use
  Company Number: GB-PFIZER INC-2010034940

PATIENT
  Sex: Female

DRUGS (3)
  1. LIPITOR [Suspect]
     Indication: BLOOD CHOLESTEROL
     Dosage: 20 MG, UNK
     Dates: start: 20091101, end: 20100315
  2. LIPITOR [Suspect]
     Dosage: 10 MG, UNK
  3. BENDROFLUMETHIAZIDE [Concomitant]
     Dosage: 2.5 MG, 1X/DAY

REACTIONS (3)
  - BLOOD CALCIUM INCREASED [None]
  - DRUG INEFFECTIVE [None]
  - TINNITUS [None]
